FAERS Safety Report 20937925 (Version 1)
Quarter: 2022Q2

REPORT INFORMATION
  Report Type: Spontaneous
  Country: US (occurrence: None)
  Receive Date: 20220608
  Receipt Date: 20220608
  Transmission Date: 20220721
  Serious: Yes (Hospitalization)
  Sender: FDA-Public Use
  Company Number: None

PATIENT
  Age: 65 Year
  Sex: Male
  Weight: 88.3 kg

DRUGS (3)
  1. PAXLOVID [Suspect]
     Active Substance: NIRMATRELVIR\RITONAVIR
     Indication: COVID-19
     Dosage: FREQUENCY : TWICE A DAY;?
     Route: 048
     Dates: start: 20220425, end: 20220430
  2. AUGMENTIN [Concomitant]
     Active Substance: AMOXICILLIN\CLAVULANATE POTASSIUM
     Dates: start: 20220525, end: 20220527
  3. TAMIFLU [Concomitant]
     Active Substance: OSELTAMIVIR PHOSPHATE
     Dates: start: 20220525, end: 20220527

REACTIONS (12)
  - COVID-19 [None]
  - SARS-CoV-2 test positive [None]
  - Liver function test increased [None]
  - Liver injury [None]
  - Blood creatinine increased [None]
  - White blood cell count increased [None]
  - Procalcitonin increased [None]
  - Productive cough [None]
  - Pyrexia [None]
  - Chills [None]
  - Odynophagia [None]
  - Abdominal pain upper [None]

NARRATIVE: CASE EVENT DATE: 20220527
